FAERS Safety Report 19387346 (Version 1)
Quarter: 2021Q2

REPORT INFORMATION
  Report Type: Spontaneous
  Country: GB (occurrence: GB)
  Receive Date: 20210608
  Receipt Date: 20210608
  Transmission Date: 20210717
  Serious: Yes (Disabling)
  Sender: FDA-Public Use
  Company Number: GB-MYLANLABS-2021M1033283

PATIENT
  Age: 72 Year
  Sex: Female
  Weight: 68 kg

DRUGS (17)
  1. RAMIPRIL. [Suspect]
     Active Substance: RAMIPRIL
     Indication: PRODUCT USED FOR UNKNOWN INDICATION
     Dosage: 5 MILLIGRAM
     Dates: start: 20210525
  2. OMEPRAZOLE. [Concomitant]
     Active Substance: OMEPRAZOLE
     Dosage: BEFORE BREAKFAST
     Dates: start: 20210401, end: 20210406
  3. SALBUTAMOL [Concomitant]
     Active Substance: ALBUTEROL
     Dosage: AS REQUIRED
     Dates: start: 20210108
  4. SEREVENT DISKUS [Concomitant]
     Active Substance: SALMETEROL XINAFOATE
     Dosage: 2 DOSAGE FORM, BID
     Route: 055
     Dates: start: 20210108
  5. ACETYLCYSTEINE. [Concomitant]
     Active Substance: ACETYLCYSTEINE
     Dosage: 1 DOSAGE FORM, QD
     Dates: start: 20210406, end: 20210419
  6. FLIXOTIDE [Concomitant]
     Active Substance: FLUTICASONE PROPIONATE
     Dosage: 4 DOSAGE FORM, BID
     Dates: start: 20210108
  7. IPRATROPIUM BROMIDE. [Concomitant]
     Active Substance: IPRATROPIUM BROMIDE
     Dosage: 1 TO 2 TO BE 3 TO 4 TI
     Route: 055
     Dates: start: 20210514
  8. AMOXICILLIN. [Concomitant]
     Active Substance: AMOXICILLIN
     Dosage: 1 DOSAGE FORM, TID
     Dates: start: 20210401, end: 20210408
  9. ATROVENT [Concomitant]
     Active Substance: IPRATROPIUM BROMIDE
     Dosage: 1 DOSAGE FORM, QID
     Dates: start: 20200415, end: 20210406
  10. CARBOCISTEINE [Concomitant]
     Active Substance: CARBOCYSTEINE
     Dosage: TO REDUCE MUCUS ON LUNGS
     Dates: start: 20210312, end: 20210411
  11. PARACETAMOL [Concomitant]
     Active Substance: ACETAMINOPHEN
     Dosage: TAKE 1 OR 2 UPTO 4 TIMES/DAY
     Dates: start: 20210108
  12. CLARITHROMYCIN. [Concomitant]
     Active Substance: CLARITHROMYCIN
     Dosage: TO TREA
     Dates: start: 20210419, end: 20210424
  13. CODEINE PHOSPHATE [Concomitant]
     Active Substance: CODEINE PHOSPHATE
     Dosage: 1 DOSAGE FORM, QID
     Dates: start: 20210108
  14. PANTOPRAZOLE [Concomitant]
     Active Substance: PANTOPRAZOLE
     Dosage: 1 DOSAGE FORM, QD
     Dates: start: 20210108
  15. PREDNISOLONE. [Concomitant]
     Active Substance: PREDNISOLONE
     Dosage: RESCUE PACK. USE AS DIRECTED
     Dates: start: 20210413, end: 20210418
  16. RAMIPRIL. [Concomitant]
     Active Substance: RAMIPRIL
     Indication: HYPERTENSION
     Dosage: EVERY MORNING
     Dates: start: 20210520
  17. SPIRIVA [Concomitant]
     Active Substance: TIOTROPIUM BROMIDE MONOHYDRATE
     Dosage: REPLACE INHALER DEVI
     Dates: start: 20210406, end: 20210514

REACTIONS (3)
  - Palpitations [Unknown]
  - Headache [Unknown]
  - Throat tightness [Recovering/Resolving]

NARRATIVE: CASE EVENT DATE: 20210525
